FAERS Safety Report 4978975-1 (Version None)
Quarter: 2006Q2

REPORT INFORMATION
  Report Type: 
  Country: None (occurrence: None)
  Receive Date: 20060419
  Receipt Date: 20060419
  Transmission Date: 20061013
  Serious: Yes (Hospitalization, Disabling)
  Sender: FDA-Public Use
  Company Number: None

PATIENT
  Age: 8 Year
  Sex: Male
  Weight: 32.2054 kg

DRUGS (2)
  1. BACTRIM DS [Suspect]
     Indication: PHARYNGOLARYNGEAL PAIN
     Dosage: 1 PILL 2 TIMES PER DAY   10 DAYS  PO
     Route: 048
     Dates: start: 20060410, end: 20060416
  2. BACTRIM DS [Suspect]
     Indication: SINUSITIS
     Dosage: 1 PILL 2 TIMES PER DAY   10 DAYS  PO
     Route: 048
     Dates: start: 20060410, end: 20060416

REACTIONS (7)
  - ANOREXIA [None]
  - DYSPNOEA [None]
  - ERYTHEMA [None]
  - HEADACHE [None]
  - LOCAL SWELLING [None]
  - RASH [None]
  - SWELLING FACE [None]
